FAERS Safety Report 4461728-0 (Version None)
Quarter: 2004Q3

REPORT INFORMATION
  Report Type: 
  Country: None (occurrence: None)
  Receive Date: 20040929
  Receipt Date: 20040922
  Transmission Date: 20050211
  Serious: Yes (Hospitalization, Other)
  Sender: FDA-Public Use
  Company Number: PHBS2004CO12753

PATIENT
  Age: 52 Year
  Sex: Female

DRUGS (3)
  1. TRILEPTAL [Suspect]
     Indication: EPILEPSY
     Route: 048
  2. CEPHALEXIN [Concomitant]
     Route: 065
  3. NAPROXEN [Concomitant]
     Route: 065

REACTIONS (6)
  - BLINDNESS [None]
  - CONVULSION [None]
  - SOMNOLENCE [None]
  - SURGERY [None]
  - SYNCOPE [None]
  - THERMAL BURN [None]
